FAERS Safety Report 9533264 (Version 1)
Quarter: 2013Q3

REPORT INFORMATION
  Report Type: Spontaneous
  Country: IT (occurrence: FR)
  Receive Date: 20130918
  Receipt Date: 20130918
  Transmission Date: 20140515
  Serious: Yes (Death)
  Sender: FDA-Public Use
  Company Number: FR-FRI-1000048838

PATIENT
  Age: 63 Year
  Sex: Male

DRUGS (12)
  1. NEBIVOLOL [Suspect]
     Dosage: 5 MG
     Route: 048
     Dates: end: 20130724
  2. DOCETAXEL EBEWE [Suspect]
     Indication: SQUAMOUS CELL CARCINOMA
     Dosage: 64 MG
     Route: 042
     Dates: start: 20130717, end: 20130717
  3. FLUOROURACIL [Suspect]
     Indication: SQUAMOUS CELL CARCINOMA
     Dosage: 650 MG
     Route: 042
     Dates: start: 20130717, end: 20130718
  4. CISPLATINE [Suspect]
     Indication: SQUAMOUS CELL CARCINOMA
     Dosage: 65 MG
     Route: 042
     Dates: start: 20130717, end: 20130717
  5. SINTROM [Suspect]
     Route: 048
     Dates: end: 20130724
  6. KARDEGIC [Suspect]
     Dosage: 75 MG
     Route: 048
  7. DUROGESIC [Suspect]
     Indication: ANALGESIC INTERVENTION SUPPORTIVE THERAPY
     Route: 062
     Dates: start: 20130724
  8. SIMVASTATINE [Suspect]
     Indication: DYSLIPIDAEMIA
     Dosage: 20 MG
     Route: 048
  9. CALCIUM LEVOFOLINATE [Concomitant]
  10. EMEND [Concomitant]
  11. ONDANSETRON [Concomitant]
  12. SOLUMEDROL [Concomitant]

REACTIONS (8)
  - Enterocolitis haemorrhagic [Fatal]
  - Leukopenia [Fatal]
  - Lymphopenia [Fatal]
  - Neutropenia [Fatal]
  - Enterobacter infection [Fatal]
  - Enterobacter sepsis [Fatal]
  - Hypothermia [Fatal]
  - Vomiting [Fatal]
